FAERS Safety Report 6651711-9 (Version None)
Quarter: 2010Q1

REPORT INFORMATION
  Report Type: 
  Country: None (occurrence: None)
  Receive Date: 20100322
  Receipt Date: 20100304
  Transmission Date: 20100710
  Serious: Yes (Hospitalization)
  Sender: FDA-Public Use
  Company Number: DSA_42736_2010

PATIENT
  Age: 77 Year
  Sex: Male

DRUGS (5)
  1. ENALAPRIL MALEATE W/HYDROCHLOROTHIAZIDE (ENALPRIL MALEATE + HYDROCHLOR [Suspect]
     Indication: HYPERTENSION
     Dosage: DF ORAL
     Route: 048
     Dates: end: 20100110
  2. CLOPIDOGREL BISULAFATE (CLOPIDOGREL BISULFATE) [Suspect]
     Indication: TRANSIENT ISCHAEMIC ATTACK
     Dosage: 75 MG ORAL
     Route: 048
     Dates: end: 20100114
  3. TAMSULOSIN HYDROCHLORIDE (OMEXOL - TAMULOSIN HYDROCHLORIDE) [Suspect]
     Indication: BLADDER CANCER
     Dosage: 0.4 MG
     Dates: end: 20100114
  4. METFORMIN HCL [Suspect]
     Indication: TYPE 2 DIABETES MELLITUS
     Dosage: 3 G
  5. GLUCOR (GLUCOR - ACARBOSE) (NOT SPECIFIED) [Suspect]
     Indication: TYPE 2 DIABETES MELLITUS
     Dosage: 300 MG

REACTIONS (6)
  - DECREASED APPETITE [None]
  - DERMATITIS EXFOLIATIVE [None]
  - INSOMNIA [None]
  - LICHENOID KERATOSIS [None]
  - PRURITUS [None]
  - TOXIC SKIN ERUPTION [None]
